FAERS Safety Report 14093927 (Version 1)
Quarter: 2017Q4

REPORT INFORMATION
  Report Type: Spontaneous
  Country: US (occurrence: US)
  Receive Date: 20171016
  Receipt Date: 20171016
  Transmission Date: 20180321
  Serious: Yes (Other)
  Sender: FDA-Public Use
  Company Number: US-TEVA-815453USA

PATIENT
  Age: 75 Year
  Sex: Female

DRUGS (1)
  1. OXAZEPAM. [Suspect]
     Active Substance: OXAZEPAM
     Indication: FIBROMYALGIA
     Route: 065

REACTIONS (5)
  - Throat tightness [Unknown]
  - Drug hypersensitivity [Unknown]
  - Neoplasm malignant [Not Recovered/Not Resolved]
  - Drug ineffective [Unknown]
  - Product use in unapproved indication [Unknown]
